FAERS Safety Report 5796935-8 (Version None)
Quarter: 2008Q3

REPORT INFORMATION
  Report Type: 
  Country: None (occurrence: None)
  Receive Date: 20080701
  Receipt Date: 20080623
  Transmission Date: 20090109
  Serious: Yes (Hospitalization)
  Sender: FDA-Public Use
  Company Number: JP-ABBOTT-08P-087-0459245-00

PATIENT
  Age: 82 Year
  Sex: Female

DRUGS (2)
  1. SEVOFLURANE [Suspect]
     Indication: SURGERY
  2. SEVOFLURANE [Suspect]
     Indication: MITRAL VALVE INCOMPETENCE

REACTIONS (1)
  - BLOOD BILIRUBIN INCREASED [None]
